FAERS Safety Report 15730682 (Version 4)
Quarter: 2019Q1

REPORT INFORMATION
  Report Type: Spontaneous
  Country: US (occurrence: US)
  Receive Date: 20181217
  Receipt Date: 20190315
  Transmission Date: 20190417
  Serious: Yes (Other)
  Sender: FDA-Public Use
  Company Number: US-SA-2018SA339955

PATIENT
  Age: 56 Year
  Sex: Female
  Weight: 129.71 kg

DRUGS (6)
  1. TAXOTERE [Suspect]
     Active Substance: DOCETAXEL
     Indication: BREAST CANCER FEMALE
     Dosage: 168.7 MG, Q3W
     Route: 042
     Dates: start: 20070305, end: 20070305
  2. ALOXI [Concomitant]
     Active Substance: PALONOSETRON HYDROCHLORIDE
     Dosage: UNK UNK, UNK
     Dates: start: 2007
  3. CYCLOPHOSPHAMIDE. [Concomitant]
     Active Substance: CYCLOPHOSPHAMIDE
     Dosage: UNK
     Dates: start: 2007
  4. TAXOTERE [Suspect]
     Active Substance: DOCETAXEL
     Dosage: 168.7 MG, Q3W
     Route: 042
     Dates: start: 20070507, end: 20070507
  5. DECADRON [Concomitant]
     Active Substance: DEXAMETHASONE
     Dosage: UNK UNK, UNK
     Dates: start: 2007
  6. CYTOXAN [Concomitant]
     Active Substance: CYCLOPHOSPHAMIDE
     Dosage: 600 MG/M2, UNK
     Dates: start: 2007

REACTIONS (4)
  - Alopecia [Not Recovered/Not Resolved]
  - Anxiety [Unknown]
  - Emotional distress [Unknown]
  - Impaired quality of life [Unknown]

NARRATIVE: CASE EVENT DATE: 200801
